FAERS Safety Report 18807139 (Version 1)
Quarter: 2021Q1

REPORT INFORMATION
  Report Type: Spontaneous
  Country: US (occurrence: US)
  Receive Date: 20210128
  Receipt Date: 20210128
  Transmission Date: 20210419
  Serious: No
  Sender: FDA-Public Use
  Company Number: US-LUNDBECK-DKLU3024817

PATIENT
  Age: 66 Year
  Sex: Female

DRUGS (1)
  1. NORTHERA [Suspect]
     Active Substance: DROXIDOPA
     Indication: BASAL GANGLION DEGENERATION
     Dosage: 100MG ALONG WITH TWO 200MG CAPSULES
     Route: 048
     Dates: start: 20200430

REACTIONS (3)
  - Product dose omission issue [Recovered/Resolved]
  - Product use issue [Unknown]
  - Nausea [Recovered/Resolved]
